FAERS Safety Report 21519277 (Version 1)
Quarter: 2022Q4

REPORT INFORMATION
  Report Type: Spontaneous
  Country: US (occurrence: None)
  Receive Date: 20221027
  Receipt Date: 20221027
  Transmission Date: 20230113
  Serious: Yes (Hospitalization)
  Sender: FDA-Public Use
  Company Number: None

PATIENT
  Age: 57 Year
  Sex: Female
  Weight: 64.86 kg

DRUGS (1)
  1. AMILORIDE [Suspect]
     Active Substance: AMILORIDE
     Indication: Diabetes insipidus
     Dosage: 40 MG BID PO?
     Route: 048
     Dates: start: 20220707, end: 20220718

REACTIONS (3)
  - Acute kidney injury [None]
  - Hyperkalaemia [None]
  - Hyponatraemia [None]

NARRATIVE: CASE EVENT DATE: 20220730
